FAERS Safety Report 16771641 (Version 1)
Quarter: 2019Q3

REPORT INFORMATION
  Report Type: Spontaneous
  Country: US (occurrence: US)
  Receive Date: 20190904
  Receipt Date: 20190904
  Transmission Date: 20191005
  Serious: No
  Sender: FDA-Public Use
  Company Number: US-EYEPOINT PHARMACEUTICALS, INC.-US-EYP-19-00091

PATIENT

DRUGS (1)
  1. DEXYCU [Suspect]
     Active Substance: DEXAMETHASONE
     Indication: PRODUCT USED FOR UNKNOWN INDICATION
     Route: 031

REACTIONS (1)
  - Device dislocation [Unknown]
